FAERS Safety Report 12863556 (Version 1)
Quarter: 2016Q4

REPORT INFORMATION
  Report Type: Spontaneous
  Country: US (occurrence: US)
  Receive Date: 20161019
  Receipt Date: 20161019
  Transmission Date: 20170207
  Serious: No
  Sender: FDA-Public Use
  Company Number: US-OTSUKA-2016_022356

PATIENT
  Sex: Female

DRUGS (3)
  1. REXULTI [Suspect]
     Active Substance: BREXPIPRAZOLE
     Indication: PRODUCT USED FOR UNKNOWN INDICATION
     Dosage: 2 MG, UNK
     Route: 065
  2. LATUDA [Concomitant]
     Active Substance: LURASIDONE HYDROCHLORIDE
     Indication: PRODUCT USED FOR UNKNOWN INDICATION
     Dosage: UNK
     Route: 065
  3. REXULTI [Suspect]
     Active Substance: BREXPIPRAZOLE
     Dosage: 1 MG, UNK
     Route: 065

REACTIONS (17)
  - Dysarthria [Recovering/Resolving]
  - Confusional state [Recovering/Resolving]
  - Mental disorder [Unknown]
  - General physical health deterioration [Unknown]
  - Swelling [Unknown]
  - Compulsive shopping [Unknown]
  - Obsessive-compulsive symptom [Unknown]
  - Tachyphrenia [Unknown]
  - Irritability [Unknown]
  - Diplopia [Unknown]
  - Anger [Unknown]
  - Crying [Unknown]
  - Aggression [Unknown]
  - Weight increased [Unknown]
  - Condition aggravated [Unknown]
  - Emotional disorder [Unknown]
  - Memory impairment [Unknown]
